FAERS Safety Report 7632046-4 (Version None)
Quarter: 2011Q3

REPORT INFORMATION
  Report Type: 
  Country: None (occurrence: None)
  Receive Date: 20110725
  Receipt Date: 20110523
  Transmission Date: 20111222
  Serious: No
  Sender: FDA-Public Use
  Company Number: US-BRISTOL-MYERS SQUIBB COMPANY-15768443

PATIENT
  Age: 53 Year
  Sex: Male

DRUGS (1)
  1. COUMADIN [Suspect]
     Dosage: 1 DF: 5MG HALF TAB DAILY(REGULAR DOSE). RESUMED ON 5MG

REACTIONS (1)
  - PROTHROMBIN TIME RATIO INCREASED [None]
